FAERS Safety Report 20610704 (Version 1)
Quarter: 2022Q1

REPORT INFORMATION
  Report Type: Report from Study
  Country: US (occurrence: US)
  Receive Date: 20220318
  Receipt Date: 20220318
  Transmission Date: 20220424
  Serious: Yes (Other)
  Sender: FDA-Public Use
  Company Number: US-TAKEDA-US202030093

PATIENT
  Sex: Female

DRUGS (2)
  1. HUMAN IMMUNOGLOBULIN G [Suspect]
     Active Substance: HUMAN IMMUNOGLOBULIN G
     Indication: Immunodeficiency common variable
     Dosage: UNK, UNKNOWN
     Route: 065
  2. CUVITRU [Suspect]
     Active Substance: HUMAN IMMUNOGLOBULIN G
     Indication: Immunodeficiency common variable
     Dosage: UNK
     Route: 065

REACTIONS (19)
  - Type 1 diabetes mellitus [Unknown]
  - Gastrointestinal disorder [Unknown]
  - Vitamin C deficiency [Unknown]
  - Drug hypersensitivity [Unknown]
  - Overweight [Unknown]
  - Wheelchair user [Unknown]
  - Dysphonia [Unknown]
  - Poor venous access [Unknown]
  - Asthma [Unknown]
  - Multiple allergies [Unknown]
  - COVID-19 [Unknown]
  - Nasopharyngitis [Unknown]
  - Cough [Unknown]
  - Urticaria [Unknown]
  - Injection site pain [Unknown]
  - COVID-19 immunisation [Unknown]
  - Fatigue [Unknown]
  - Dyspnoea [Unknown]
  - Ear infection [Unknown]
